FAERS Safety Report 6682072-7 (Version None)
Quarter: 2010Q2

REPORT INFORMATION
  Report Type: 
  Country: None (occurrence: None)
  Receive Date: 20100415
  Receipt Date: 20100412
  Transmission Date: 20101027
  Serious: Yes (Other)
  Sender: FDA-Public Use
  Company Number: US-BIOGENIDEC-2010BI010064

PATIENT
  Age: 46 Year
  Sex: Female

DRUGS (2)
  1. AVONEX [Suspect]
     Indication: MULTIPLE SCLEROSIS
     Route: 030
     Dates: start: 20011101, end: 20060113
  2. AVONEX [Suspect]

REACTIONS (4)
  - BREAST CANCER IN SITU [None]
  - HAEMOLYTIC ANAEMIA [None]
  - HYSTERECTOMY [None]
  - INFLUENZA LIKE ILLNESS [None]
